FAERS Safety Report 8231217-6 (Version None)
Quarter: 2012Q1

REPORT INFORMATION
  Report Type: 
  Country: None (occurrence: None)
  Receive Date: 20120323
  Receipt Date: 20120323
  Transmission Date: 20120608
  Serious: Yes (Life-Threatening, Hospitalization)
  Sender: FDA-Public Use
  Company Number: None

PATIENT
  Sex: Male
  Weight: 78.5 kg

DRUGS (1)
  1. WARFARIN SODIUM [Suspect]
     Indication: ATRIAL FIBRILLATION
     Dosage: UNKNOWN ONCE
     Route: 048
     Dates: start: 20111028, end: 20111028

REACTIONS (3)
  - DYSPNOEA [None]
  - DYSPHAGIA [None]
  - ANGIOEDEMA [None]
